FAERS Safety Report 7206044-9 (Version None)
Quarter: 2010Q4

REPORT INFORMATION
  Report Type: 
  Country: None (occurrence: None)
  Receive Date: 20101229
  Receipt Date: 20101229
  Transmission Date: 20110411
  Serious: No
  Sender: FDA-Public Use
  Company Number: None

PATIENT
  Age: 90 Year
  Sex: Female
  Weight: 69.4003 kg

DRUGS (4)
  1. OXYCODONE AND ACETAMINOPHEN [Suspect]
     Indication: PAIN IN EXTREMITY
     Dosage: 1/2 TO 1 TAB EVERY 6 HRS. PAIN 12/03/2010 1/2 TAB 8PM 12/04/2010 (STOPPED 4 AM)
     Dates: start: 20101203
  2. OXYCODONE AND ACETAMINOPHEN [Suspect]
     Indication: TENDONITIS
     Dosage: 1/2 TO 1 TAB EVERY 6 HRS. PAIN 12/03/2010 1/2 TAB 8PM 12/04/2010 (STOPPED 4 AM)
     Dates: start: 20101203
  3. OXYCODONE AND ACETAMINOPHEN [Suspect]
     Indication: PAIN IN EXTREMITY
     Dosage: 1/2 TO 1 TAB EVERY 6 HRS. PAIN 12/03/2010 1/2 TAB 8PM 12/04/2010 (STOPPED 4 AM)
     Dates: start: 20101204
  4. OXYCODONE AND ACETAMINOPHEN [Suspect]
     Indication: TENDONITIS
     Dosage: 1/2 TO 1 TAB EVERY 6 HRS. PAIN 12/03/2010 1/2 TAB 8PM 12/04/2010 (STOPPED 4 AM)
     Dates: start: 20101204

REACTIONS (3)
  - DISORIENTATION [None]
  - FEELING ABNORMAL [None]
  - SENSORY LOSS [None]
